FAERS Safety Report 4730559-6 (Version None)
Quarter: 2005Q3

REPORT INFORMATION
  Report Type: 
  Country: None (occurrence: None)
  Receive Date: 20050725
  Receipt Date: 20050429
  Transmission Date: 20060218
  Serious: No
  Sender: FDA-Public Use
  Company Number: USA050291032

PATIENT
  Age: 56 Year
  Sex: Female
  Weight: 73 kg

DRUGS (5)
  1. STRATTERA [Suspect]
     Indication: ATTENTION DEFICIT/HYPERACTIVITY DISORDER
     Dosage: 60 MG/1 DAY
     Dates: start: 20050101
  2. LEXAPRO [Concomitant]
  3. VICODIN [Concomitant]
  4. HORMONE REPLACEMENT THERAPY [Concomitant]
  5. VITAMINS [Concomitant]

REACTIONS (9)
  - DECREASED APPETITE [None]
  - DIZZINESS [None]
  - DRY EYE [None]
  - DRY MOUTH [None]
  - DYSGEUSIA [None]
  - ERUCTATION [None]
  - NAUSEA [None]
  - TONGUE COATED [None]
  - URINE FLOW DECREASED [None]
